FAERS Safety Report 6362945-5 (Version None)
Quarter: 2009Q3

REPORT INFORMATION
  Report Type: 
  Country: None (occurrence: None)
  Receive Date: 20090919
  Receipt Date: 20090613
  Transmission Date: 20100115
  Serious: No
  Sender: FDA-Public Use
  Company Number: US-ABBOTT-09P-163-0579601-00

PATIENT
  Sex: Female
  Weight: 70.37 kg

DRUGS (4)
  1. HUMIRA [Suspect]
     Indication: PSORIASIS
     Dosage: DAY 1
     Dates: start: 20090521
  2. HUMIRA [Suspect]
     Dates: start: 20090529
  3. HUMIRA [Suspect]
     Dates: start: 20090612
  4. HYDROXYZINE [Concomitant]
     Indication: ANXIETY

REACTIONS (1)
  - INJECTION SITE IRRITATION [None]
